FAERS Safety Report 9330535 (Version 2)
Quarter: 2016Q2

REPORT INFORMATION
  Report Type: Spontaneous
  Country: US (occurrence: US)
  Receive Date: 20130605
  Receipt Date: 20160509
  Transmission Date: 20160815
  Serious: Yes (Hospitalization, Other)
  Sender: FDA-Public Use
  Company Number: US-SHIRE-ALL1-2013-03456

PATIENT
  Age: 12 Year
  Sex: Male
  Weight: 69.8 kg

DRUGS (17)
  1. VYVANSE [Suspect]
     Active Substance: LISDEXAMFETAMINE DIMESYLATE
     Dosage: 20 MG, 1X/DAY:QD (AT LUNCH)
     Route: 048
     Dates: start: 20130321, end: 20130924
  2. MENINGOCOCCAL POLYSACCHARIDE VACCINE A NOS [Suspect]
     Active Substance: MENINGOCOCCAL POLYSACCHARIDE VACCINE A\NEISSERIA MENINGITIDIS GROUP A CAPSULAR POLYSACCHARIDE ANTIGEN
     Indication: IMMUNISATION
     Dosage: UNK, ONE DOSE
     Route: 030
     Dates: start: 20121009, end: 20121009
  3. DESYREL [Suspect]
     Active Substance: TRAZODONE HYDROCHLORIDE
     Indication: SLEEP DISORDER
     Dosage: 12.5 MG, 1X/DAY:QD (NIGHTLY)
     Route: 048
     Dates: start: 20130108
  4. CATAPRES                           /00171101/ [Suspect]
     Active Substance: CLONIDINE
     Dosage: 0.1 MG, 2X/DAY:BID
     Route: 048
     Dates: start: 201309
  5. VYVANSE [Suspect]
     Active Substance: LISDEXAMFETAMINE DIMESYLATE
     Indication: ATTENTION DEFICIT/HYPERACTIVITY DISORDER
     Dosage: 20 MG, 1X/DAY:QD (EVERY MORNING)
     Route: 048
     Dates: start: 20130123, end: 201303
  6. DEPAKOTE [Suspect]
     Active Substance: DIVALPROEX SODIUM
     Dosage: 500 MG, 2X/DAY:BID
     Route: 048
     Dates: start: 20130326, end: 2013
  7. DEPAKOTE [Suspect]
     Active Substance: DIVALPROEX SODIUM
     Dosage: 250 MG, 3X/DAY:TID
     Route: 048
     Dates: start: 20130621, end: 201309
  8. DEPAKOTE [Suspect]
     Active Substance: DIVALPROEX SODIUM
     Dosage: 250 MG, 2X/DAY:BID
     Route: 048
     Dates: start: 201309
  9. VYVANSE [Suspect]
     Active Substance: LISDEXAMFETAMINE DIMESYLATE
     Indication: AFFECTIVE DISORDER
     Dosage: 40 MG, 1X/DAY:QD (IN THE MORNING)
     Route: 048
     Dates: start: 20130321, end: 20130924
  10. MENINGOCOCCAL POLYSACCHARIDE VACCINE A NOS [Suspect]
     Active Substance: MENINGOCOCCAL POLYSACCHARIDE VACCINE A\NEISSERIA MENINGITIDIS GROUP A CAPSULAR POLYSACCHARIDE ANTIGEN
     Dosage: UNK, ONE DOSE
     Route: 030
     Dates: start: 20130409, end: 20130409
  11. PROZAC [Suspect]
     Active Substance: FLUOXETINE HYDROCHLORIDE
     Indication: AFFECTIVE DISORDER
     Dosage: 10 MG, 1X/DAY:QD
     Route: 048
     Dates: start: 20121108
  12. THORAZINE [Suspect]
     Active Substance: CHLORPROMAZINE
     Indication: AFFECTIVE DISORDER
     Dosage: 20 MG, 3X/DAY:TID
     Route: 048
     Dates: start: 20130326, end: 2013
  13. DESYREL [Suspect]
     Active Substance: TRAZODONE HYDROCHLORIDE
     Indication: AFFECTIVE DISORDER
  14. MENINGOCOCCAL POLYSACCHARIDE VACCINE A NOS [Suspect]
     Active Substance: MENINGOCOCCAL POLYSACCHARIDE VACCINE A\NEISSERIA MENINGITIDIS GROUP A CAPSULAR POLYSACCHARIDE ANTIGEN
     Dosage: UNK, ONE DOSE
     Route: 030
     Dates: start: 20121207, end: 20121207
  15. DEPAKOTE [Suspect]
     Active Substance: DIVALPROEX SODIUM
     Indication: AFFECTIVE DISORDER
     Dosage: 300 MG, 2X/DAY:BID
     Route: 048
     Dates: start: 20120301, end: 20130325
  16. CATAPRES                           /00171101/ [Suspect]
     Active Substance: CLONIDINE
     Indication: AFFECTIVE DISORDER
     Dosage: 0.2 MG, 1X/DAY:QD (NIGHTLY)
     Route: 048
     Dates: start: 20120301
  17. THORAZINE [Suspect]
     Active Substance: CHLORPROMAZINE
     Indication: AFFECTIVE DISORDER
     Dosage: 25 MG, AS REQ^D (EVERY 8 HOURS)
     Route: 048
     Dates: start: 201309

REACTIONS (8)
  - Affective disorder [Recovered/Resolved]
  - Refusal of treatment by patient [Recovered/Resolved]
  - Inappropriate schedule of drug administration [Not Recovered/Not Resolved]
  - Aggression [Recovered/Resolved]
  - Agitation [Unknown]
  - Condition aggravated [Recovered/Resolved]
  - Sleep disorder [Unknown]
  - Suicidal ideation [Recovered/Resolved]

NARRATIVE: CASE EVENT DATE: 201303
